FAERS Safety Report 4489737-6 (Version None)
Quarter: 2004Q4

REPORT INFORMATION
  Report Type: 
  Country: None (occurrence: None)
  Receive Date: 20041026
  Receipt Date: 20041014
  Transmission Date: 20050328
  Serious: Yes (Hospitalization)
  Sender: FDA-Public Use
  Company Number: 200412862GDS

PATIENT
  Age: 74 Year
  Sex: Female

DRUGS (6)
  1. ASPIRIN [Suspect]
     Indication: HYPERTENSION
     Dosage: 75 MG, TOTAL DAILY
  2. ASPIRIN [Suspect]
     Indication: MYOCARDIAL ISCHAEMIA
     Dosage: 75 MG, TOTAL DAILY
  3. CLOPIDOGREL BISULFATE [Suspect]
     Dosage: 75 MG, TOTAL DAILY
  4. ATORVASTATIN CALCIUM [Concomitant]
  5. ISOSORBIDE MONONITRATE [Concomitant]
  6. SOTALOL HYDROCHLORIDE [Concomitant]

REACTIONS (4)
  - CARDIAC ARREST [None]
  - POSTOPERATIVE WOUND COMPLICATION [None]
  - RESPIRATORY DISTRESS [None]
  - WOUND HAEMORRHAGE [None]
